FAERS Safety Report 9995988 (Version 1)
Quarter: 2014Q1

REPORT INFORMATION
  Report Type: Spontaneous
  Country: FR (occurrence: FR)
  Receive Date: 20140311
  Receipt Date: 20140311
  Transmission Date: 20141002
  Serious: Yes (Hospitalization)
  Sender: FDA-Public Use
  Company Number: FR-PFIZER INC-2014064159

PATIENT
  Age: 42 Year
  Sex: Male

DRUGS (2)
  1. SOMAVERT [Suspect]
     Indication: ACROMEGALY
     Dosage: 15 MG, DAILY
     Route: 058
     Dates: start: 201307
  2. SOMAVERT [Suspect]
     Dosage: 30 MG, DAILY
     Route: 058
     Dates: end: 20140212

REACTIONS (2)
  - Pancreatitis [Recovering/Resolving]
  - Cholelithiasis [Unknown]
